FAERS Safety Report 17502157 (Version 2)
Quarter: 2020Q2

REPORT INFORMATION
  Report Type: Spontaneous
  Country: ES (occurrence: ES)
  Receive Date: 20200305
  Receipt Date: 20200610
  Transmission Date: 20200713
  Serious: Yes (Death, Life-Threatening, Other)
  Sender: FDA-Public Use
  Company Number: ES-009507513-2003ESP001099

PATIENT
  Age: 92 Year
  Sex: Female
  Weight: 50 kg

DRUGS (10)
  1. GLUCOSE BAXTER [Concomitant]
     Active Substance: DEXTROSE
     Indication: DIABETIC DIET
     Dosage: 500/24H
     Route: 042
     Dates: start: 20181107, end: 20181114
  2. VANCOMYCIN [Concomitant]
     Active Substance: VANCOMYCIN
     Indication: CLOSTRIDIUM DIFFICILE INFECTION
     Dosage: UNK
     Dates: start: 2018
  3. MICONAZOLE. [Concomitant]
     Active Substance: MICONAZOLE
     Indication: FUNGAL INFECTION
     Dosage: 1 G/12 H
     Route: 061
     Dates: start: 20181029, end: 20181114
  4. INSULIN LISPRO [Concomitant]
     Active Substance: INSULIN LISPRO
     Indication: HYPERGLYCAEMIA
     Dosage: ACCORDING TO PERSCRIPTION
     Route: 058
     Dates: start: 20181108, end: 20181114
  5. CLOMETHIAZOLE [Concomitant]
     Active Substance: CLOMETHIAZOLE
     Indication: FUNGAL INFECTION
     Dosage: 192 MILLIGRAM
     Route: 061
     Dates: start: 20181105, end: 20181114
  6. ZINPLAVA [Suspect]
     Active Substance: BEZLOTOXUMAB
     Indication: CLOSTRIDIUM DIFFICILE INFECTION
     Dosage: UNK
     Route: 042
     Dates: start: 20181005, end: 20181005
  7. BISOPROLOL [Concomitant]
     Active Substance: BISOPROLOL
     Indication: ATRIAL FIBRILLATION
     Dosage: 5MG/24H
     Route: 048
     Dates: start: 20181016, end: 20181114
  8. PREDNISONE. [Concomitant]
     Active Substance: PREDNISONE
     Indication: RESPIRATORY FAILURE
     Dosage: 5 MG/24H
     Route: 048
     Dates: start: 20181018, end: 20181114
  9. ESCITALOPRAM [Concomitant]
     Active Substance: ESCITALOPRAM OXALATE
     Indication: DEPRESSION
     Dosage: 15MG/24H
     Route: 048
     Dates: start: 20181022, end: 20181114
  10. IPRATROPIUM BROMIDE. [Concomitant]
     Active Substance: IPRATROPIUM BROMIDE
     Indication: RESPIRATORY FAILURE
     Dosage: 500 MG/8H
     Dates: start: 20181030, end: 20181114

REACTIONS (5)
  - Pneumonia aspiration [Unknown]
  - Infection [Unknown]
  - Pseudomonal bacteraemia [Fatal]
  - Leg amputation [Unknown]
  - Device related infection [Unknown]

NARRATIVE: CASE EVENT DATE: 2018
